FAERS Safety Report 5206045-6 (Version None)
Quarter: 2007Q1

REPORT INFORMATION
  Report Type: 
  Country: None (occurrence: None)
  Receive Date: 20070105
  Receipt Date: 20061221
  Transmission Date: 20070707
  Serious: Yes (Hospitalization)
  Sender: FDA-Public Use
  Company Number: 310001N06JPN

PATIENT
  Age: 22 Year
  Sex: Male
  Weight: 65 kg

DRUGS (2)
  1. GONAL-F [Suspect]
     Dosage: 75, 2 IN 1 WEEKS, SUBCUTANEOUS
     Route: 058
     Dates: start: 20060904, end: 20061204
  2. CHORIONIC GONADORTOPIN INJ [Suspect]
     Dosage: 5000, 2 IN 1 WEEKS, SUBCUTANEOUS
     Route: 058
     Dates: start: 20060904, end: 20061204

REACTIONS (2)
  - ORCHITIS [None]
  - TESTICULAR NEOPLASM [None]
